FAERS Safety Report 4649422-4 (Version None)
Quarter: 2005Q2

REPORT INFORMATION
  Report Type: 
  Country: None (occurrence: None)
  Receive Date: 20050428
  Receipt Date: 20050428
  Transmission Date: 20051028
  Serious: Yes (Life-Threatening, Hospitalization)
  Sender: FDA-Public Use
  Company Number: None

PATIENT
  Age: 69 Year
  Sex: Male
  Weight: 80.7403 kg

DRUGS (5)
  1. RITUXAN [Suspect]
     Indication: NON-HODGKIN'S LYMPHOMA
     Dosage: 490 MG IV
     Route: 042
     Dates: start: 20050317
  2. RITUXAN [Suspect]
     Indication: NON-HODGKIN'S LYMPHOMA
     Dosage: 490 MG IV
     Route: 042
     Dates: start: 20050323
  3. ZEVALIN [Suspect]
     Dosage: IN - 111  Y-90
     Dates: start: 20050317
  4. ZEVALIN [Suspect]
     Dosage: IN - 111  Y-90
     Dates: start: 20050323
  5. PREDNISONE TAB [Concomitant]

REACTIONS (6)
  - CONDITION AGGRAVATED [None]
  - HAEMATEMESIS [None]
  - NEUROPATHY PERIPHERAL [None]
  - PLATELET COUNT DECREASED [None]
  - RESPIRATORY DISTRESS [None]
  - WHITE BLOOD CELL COUNT DECREASED [None]
